FAERS Safety Report 4945820-X (Version None)
Quarter: 2006Q1

REPORT INFORMATION
  Report Type: 
  Country: None (occurrence: None)
  Receive Date: 20060316
  Receipt Date: 20060310
  Transmission Date: 20060701
  Serious: Yes (Life-Threatening)
  Sender: FDA-Public Use
  Company Number: 2006AC00419

PATIENT
  Age: 99 Year
  Sex: Female
  Weight: 60 kg

DRUGS (2)
  1. SEROQUEL [Suspect]
     Route: 048
     Dates: start: 20040423
  2. BESITRAN [Concomitant]
     Route: 048
     Dates: start: 20011203

REACTIONS (1)
  - CEREBROVASCULAR DISORDER [None]
